FAERS Safety Report 15010183 (Version 2)
Quarter: 2018Q4

REPORT INFORMATION
  Report Type: Spontaneous
  Country: PL (occurrence: PL)
  Receive Date: 20180614
  Receipt Date: 20181009
  Transmission Date: 20190204
  Serious: Yes (Hospitalization)
  Sender: FDA-Public Use
  Company Number: PL-VIVIMED-2018SP004728

PATIENT
  Age: 36 Year
  Sex: Female

DRUGS (16)
  1. ZOLPIDEM [Suspect]
     Active Substance: ZOLPIDEM\ZOLPIDEM TARTRATE
     Indication: SLEEP DISORDER
     Dosage: UNK
     Route: 065
     Dates: start: 201309, end: 201503
  2. ZOLPIDEM [Suspect]
     Active Substance: ZOLPIDEM\ZOLPIDEM TARTRATE
     Dosage: 1100 MG PER DAY
     Route: 065
  3. ZOLPIDEM [Suspect]
     Active Substance: ZOLPIDEM\ZOLPIDEM TARTRATE
     Dosage: 5 MG DAILY
     Route: 065
  4. CODEINE [Suspect]
     Active Substance: CODEINE
     Dosage: 15 MG, EVERY 2 DAYS
     Route: 065
  5. ZOLPIDEM [Suspect]
     Active Substance: ZOLPIDEM\ZOLPIDEM TARTRATE
     Dosage: UNK, DOSE REDUCED
     Route: 065
  6. CODEINE [Suspect]
     Active Substance: CODEINE
     Indication: HEADACHE
     Dosage: UNK
     Route: 065
  7. PROPRANOLOL [Concomitant]
     Active Substance: PROPRANOLOL HYDROCHLORIDE
     Indication: PRODUCT USED FOR UNKNOWN INDICATION
     Dosage: 60 MG, PER DAY
     Route: 065
  8. OMEPRAZOLE. [Concomitant]
     Active Substance: OMEPRAZOLE
     Indication: PRODUCT USED FOR UNKNOWN INDICATION
     Dosage: 40 MG, PER DAY
     Route: 065
  9. PANCREATIN [Concomitant]
     Active Substance: PANCRELIPASE
     Indication: PRODUCT USED FOR UNKNOWN INDICATION
     Dosage: UNK
     Route: 065
  10. POTASSIUM [Concomitant]
     Active Substance: POTASSIUM
     Indication: PRODUCT USED FOR UNKNOWN INDICATION
     Dosage: UNK
     Route: 065
  11. OMEPRAZOLE. [Concomitant]
     Active Substance: OMEPRAZOLE
     Dosage: 20 MG, PER DAY
     Route: 065
  12. ZOLPIDEM [Suspect]
     Active Substance: ZOLPIDEM\ZOLPIDEM TARTRATE
     Dosage: 1800 MG PER DAY
     Route: 065
  13. ZOLPIDEM [Suspect]
     Active Substance: ZOLPIDEM\ZOLPIDEM TARTRATE
     Dosage: 120 MG PER DAY
     Route: 065
     Dates: start: 20141022
  14. PROPRANOLOL [Concomitant]
     Active Substance: PROPRANOLOL HYDROCHLORIDE
     Dosage: 60 MG, PER DAY
     Route: 065
  15. CODEINE [Suspect]
     Active Substance: CODEINE
     Dosage: 7.5 MG, EVERY 3 DAYS
     Route: 065
  16. CAFFEINE. [Suspect]
     Active Substance: CAFFEINE
     Indication: HEADACHE
     Dosage: 600 MG, UNKNOWN
     Route: 065

REACTIONS (38)
  - Somatic symptom disorder [Recovered/Resolved]
  - Bradyphrenia [Recovered/Resolved]
  - Disturbance in attention [Recovered/Resolved]
  - Vomiting [Recovered/Resolved]
  - Syncope [Recovered/Resolved]
  - Illogical thinking [Recovered/Resolved]
  - Judgement impaired [Recovered/Resolved]
  - Hyponatraemia [Recovered/Resolved]
  - Sleep disorder [Recovered/Resolved]
  - Loss of consciousness [Recovered/Resolved]
  - Psychomotor retardation [Recovered/Resolved]
  - Slow speech [Recovered/Resolved]
  - Strabismus [Recovered/Resolved]
  - Mood swings [Recovered/Resolved]
  - Affective disorder [Recovered/Resolved]
  - Cognitive disorder [Recovered/Resolved]
  - Drug dependence [Recovered/Resolved]
  - Mental impairment [Recovered/Resolved]
  - Epilepsy [Recovered/Resolved]
  - Speech disorder [Recovered/Resolved]
  - Drug abuse [Recovered/Resolved]
  - Abnormal behaviour [Recovered/Resolved]
  - Depressed mood [Recovered/Resolved]
  - Asthenia [Recovered/Resolved]
  - Salivary hypersecretion [Recovered/Resolved]
  - Gait disturbance [Recovered/Resolved]
  - Pancreatitis acute [Recovered/Resolved]
  - Emotional poverty [Recovered/Resolved]
  - Mental disorder [Recovered/Resolved]
  - Hallucination [Recovered/Resolved]
  - Thinking abnormal [Recovered/Resolved]
  - Distractibility [Recovered/Resolved]
  - Confusional state [Recovered/Resolved]
  - Hypokalaemia [Recovered/Resolved]
  - Affect lability [Recovered/Resolved]
  - Withdrawal syndrome [Recovered/Resolved]
  - Tachycardia [Recovered/Resolved]
  - Irritability [Recovered/Resolved]

NARRATIVE: CASE EVENT DATE: 201409
